FAERS Safety Report 13994601 (Version 1)
Quarter: 2017Q3

REPORT INFORMATION
  Report Type: Spontaneous
  Country: US (occurrence: None)
  Receive Date: 20170920
  Receipt Date: 20170920
  Transmission Date: 20171128
  Serious: No
  Sender: FDA-Public Use
  Company Number: None

PATIENT
  Sex: Female
  Weight: 58.51 kg

DRUGS (2)
  1. PROLIA [Suspect]
     Active Substance: DENOSUMAB
     Indication: POLYMYALGIA RHEUMATICA
     Dosage: 60MG Q 6 ML SUBQ
     Route: 058
  2. PROLIA [Suspect]
     Active Substance: DENOSUMAB
     Indication: RED BLOOD CELL SEDIMENTATION RATE INCREASED
     Dosage: 60MG Q 6 ML SUBQ
     Route: 058

REACTIONS (1)
  - Off label use [None]
